FAERS Safety Report 5072068-3 (Version None)
Quarter: 2006Q3

REPORT INFORMATION
  Report Type: 
  Country: None (occurrence: None)
  Receive Date: 20060807
  Receipt Date: 20060802
  Transmission Date: 20061208
  Serious: Yes (Life-Threatening)
  Sender: FDA-Public Use
  Company Number: PHBS2006ES11357

PATIENT
  Age: 71 Year
  Sex: Male

DRUGS (7)
  1. DIOVAN HCT [Suspect]
     Indication: ESSENTIAL HYPERTENSION
     Dosage: 160 VALS - 12.5 HCTZ MG/DAY
     Route: 048
     Dates: start: 20050606
  2. DICLOFENAC [Suspect]
     Indication: BURSITIS
     Dosage: 100 MG/DAY
     Route: 048
     Dates: start: 20060403, end: 20060415
  3. ENANTYUM [Suspect]
     Dosage: 75 MG/DAY
     Route: 048
  4. URBASON [Suspect]
     Dosage: 40 MG/DAY
     Route: 030
  5. POLARAMINE [Suspect]
     Dosage: 2 MG/DAY
  6. AUGMENTIN '125' [Suspect]
     Indication: BURSITIS
     Dosage: UNK, TID
     Route: 048
     Dates: start: 20060403, end: 20060508
  7. ESTOMIL [Suspect]
     Dosage: 15 MG/DAY
     Route: 048
     Dates: start: 20060408, end: 20060508

REACTIONS (3)
  - DRUG INTERACTION [None]
  - HEPATITIS [None]
  - RENAL FAILURE ACUTE [None]
